FAERS Safety Report 17206782 (Version 1)
Quarter: 2019Q4

REPORT INFORMATION
  Report Type: Spontaneous
  Country: US (occurrence: US)
  Receive Date: 20191227
  Receipt Date: 20191227
  Transmission Date: 20200122
  Serious: No
  Sender: FDA-Public Use
  Company Number: US-AUROBINDO-AUR-APL-2019-070437

PATIENT
  Age: 56 Year
  Sex: Female
  Weight: 57.6 kg

DRUGS (1)
  1. AMOXICILLIN TABLETS USP 875 MG [Suspect]
     Active Substance: AMOXICILLIN
     Indication: RESPIRATORY TRACT INFECTION
     Dosage: 875 MILLIGRAM, TWO TIMES A DAY, OBLONG PINK A ON ONSIDE 67 ON
     Route: 048
     Dates: start: 20191018

REACTIONS (2)
  - Chest pain [Not Recovered/Not Resolved]
  - Nausea [Not Recovered/Not Resolved]
